FAERS Safety Report 12183122 (Version 1)
Quarter: 2016Q1

REPORT INFORMATION
  Report Type: Other
  Country: CA (occurrence: CA)
  Receive Date: 20160316
  Receipt Date: 20160316
  Transmission Date: 20160526
  Serious: Yes (Other)
  Sender: FDA-Public Use
  Company Number: CA-APOTEX-2016AP006589

PATIENT
  Age: 23 Year
  Sex: Female

DRUGS (7)
  1. APO CARBAMAZEPINE TAB 200MG [Suspect]
     Active Substance: CARBAMAZEPINE
     Indication: MIGRAINE
     Dosage: 200 UNK, QID
     Route: 048
  2. METFORMIN [Concomitant]
     Active Substance: METFORMIN HYDROCHLORIDE
     Indication: POLYCYSTIC OVARIES
     Dosage: 750 UNK, BID
     Route: 048
     Dates: start: 201507
  3. MIRTAZAPINE. [Concomitant]
     Active Substance: MIRTAZAPINE
     Indication: DEPRESSION
     Dosage: 45 HS
     Route: 048
  4. GABAPENTIN. [Concomitant]
     Active Substance: GABAPENTIN
     Indication: PAIN
     Dosage: 300 UNK, QID
     Route: 048
  5. APO-CLOZAPINE [Suspect]
     Active Substance: CLOZAPINE
     Indication: PRODUCT USED FOR UNKNOWN INDICATION
     Dosage: 350 MG, HS
     Route: 048
     Dates: start: 201508
  6. VENLAFAXINE [Concomitant]
     Active Substance: VENLAFAXINE HYDROCHLORIDE
     Indication: DEPRESSION
     Dosage: 300 UNK, UNK
     Route: 048
     Dates: start: 2015
  7. APO-CLOZAPINE [Suspect]
     Active Substance: CLOZAPINE
     Dosage: 350 MG, B.I.WK.
     Route: 048

REACTIONS (3)
  - White blood cell count decreased [Recovered/Resolved]
  - Influenza [Recovered/Resolved]
  - Neutrophil count decreased [Recovered/Resolved]

NARRATIVE: CASE EVENT DATE: 20160212
